FAERS Safety Report 10236801 (Version 1)
Quarter: 2014Q1

REPORT INFORMATION
  Report Type: Spontaneous
  Country: US (occurrence: None)
  Receive Date: 20140306
  Receipt Date: 20140306
  Transmission Date: 20141002
  Serious: Yes (Hospitalization, Other)
  Sender: FDA-Public Use
  Company Number: 163-21880-13092369

PATIENT
  Age: 89 Year
  Sex: Female

DRUGS (10)
  1. REVLIMID (LENALIDOMIDE) (10 MILLIGRAM, CAPSULES) [Suspect]
     Indication: MYELODYSPLASTIC SYNDROME
     Route: 048
     Dates: start: 20130516, end: 20130603
  2. JANUVIA (SITAGLIPTIN PHOSPHATE) [Concomitant]
  3. LOSARTAN-HCTZ (HYDROCHLOROTHIAZIDE W/ LOSARTAN) [Concomitant]
  4. DEXAMETHASONE [Concomitant]
  5. PRAVASTATIN SODIUM (PRAVASTATIN SODIUM) [Concomitant]
  6. GLYBURIDE (GLIBENCLAMIDE) [Concomitant]
  7. PRILOSEC (OMEPRAZOLE) [Concomitant]
  8. DILTIAZEM HCL (DILTIAZEM HYDROCHLORIDE) [Concomitant]
  9. WARAFARIN SODIUM (WARFARIN SODIUM) [Concomitant]
  10. MULTAQ (DRONEDARONE HYDROCHLORIDE) [Concomitant]

REACTIONS (1)
  - Pneumonia bacterial [None]
